FAERS Safety Report 7730131-X (Version None)
Quarter: 2011Q3

REPORT INFORMATION
  Report Type: 
  Country: None (occurrence: None)
  Receive Date: 20110906
  Receipt Date: 20110830
  Transmission Date: 20111222
  Serious: Yes (Hospitalization, Other)
  Sender: FDA-Public Use
  Company Number: PHHY2011TW78039

PATIENT
  Sex: Male
  Weight: 76 kg

DRUGS (5)
  1. FUROSEMIDE [Concomitant]
     Indication: POLYURIA
     Dosage: 40 MG, PER DAY
     Route: 048
     Dates: start: 20110606
  2. MYCROS [Concomitant]
     Indication: BLOOD PRESSURE
     Dosage: 0.5 MG, BID
     Route: 048
     Dates: start: 20110606
  3. NORVASC [Concomitant]
     Indication: BLOOD PRESSURE
     Dosage: 5 MG, BID
     Route: 048
     Dates: start: 20110101
  4. AFINITOR [Suspect]
     Indication: METASTATIC RENAL CELL CARCINOMA
     Dosage: 10 MG, PER DAY
     Route: 048
     Dates: start: 20110719, end: 20110727
  5. TRAMADOL HYDROCHLORIDE [Concomitant]
     Indication: PAIN
     Dosage: 50 MG, TID
     Route: 048
     Dates: start: 20110101

REACTIONS (7)
  - ASCITES [None]
  - RENAL FAILURE ACUTE [None]
  - NEPHROTIC SYNDROME [None]
  - PROTEIN TOTAL DECREASED [None]
  - PLEURAL EFFUSION [None]
  - PERICARDIAL EFFUSION [None]
  - GENERALISED OEDEMA [None]
